FAERS Safety Report 7831288-2 (Version None)
Quarter: 2011Q4

REPORT INFORMATION
  Report Type: 
  Country: None (occurrence: None)
  Receive Date: 20111021
  Receipt Date: 20111012
  Transmission Date: 20120403
  Serious: Yes (Hospitalization)
  Sender: FDA-Public Use
  Company Number: JP-ROCHE-1005494

PATIENT
  Sex: Female

DRUGS (1)
  1. RITUXIMAB [Suspect]
     Indication: LYMPHOMA
     Dosage: DOSE: 375 MG/BODY
     Route: 042
     Dates: start: 20110825, end: 20110825

REACTIONS (4)
  - PHOTOPHOBIA [None]
  - VISUAL ACUITY REDUCED [None]
  - EYE PAIN [None]
  - HYPERAEMIA [None]
